APPROVED DRUG PRODUCT: MORPHINE SULFATE
Active Ingredient: MORPHINE SULFATE
Strength: 100MG
Dosage Form/Route: TABLET, EXTENDED RELEASE;ORAL
Application: A075656 | Product #001
Applicant: WATSON LABORATORIES INC
Approved: Jan 30, 2001 | RLD: No | RS: No | Type: DISCN